FAERS Safety Report 7755022-X (Version None)
Quarter: 2011Q3

REPORT INFORMATION
  Report Type: 
  Country: None (occurrence: None)
  Receive Date: 20110916
  Receipt Date: 20110907
  Transmission Date: 20111222
  Serious: Yes (Hospitalization)
  Sender: FDA-Public Use
  Company Number: IT-BRISTOL-MYERS SQUIBB COMPANY-16051443

PATIENT
  Age: 39 Year
  Sex: Female

DRUGS (5)
  1. REYATAZ [Suspect]
     Indication: ACUTE HIV INFECTION
     Route: 048
     Dates: start: 20110624, end: 20110805
  2. DIDANOSINE [Suspect]
     Dates: start: 20080901, end: 20110601
  3. NORVIR [Suspect]
     Indication: ACUTE HIV INFECTION
     Route: 048
     Dates: start: 20110624, end: 20110805
  4. TRUVADA [Suspect]
     Indication: ACUTE HIV INFECTION
     Route: 048
     Dates: start: 20110624
  5. LAMIVUDINE [Suspect]
     Dates: start: 20080901, end: 20110601

REACTIONS (2)
  - ABORTION SPONTANEOUS [None]
  - PREGNANCY [None]
